FAERS Safety Report 5456031-6 (Version None)
Quarter: 2007Q3

REPORT INFORMATION
  Report Type: 
  Country: None (occurrence: None)
  Receive Date: 20070918
  Receipt Date: 20070228
  Transmission Date: 20080115
  Serious: Yes (Hospitalization, Other)
  Sender: FDA-Public Use
  Company Number: US-ASTRAZENECA-2006UW24082

PATIENT
  Sex: Female
  Weight: 108.2 kg

DRUGS (6)
  1. SEROQUEL [Suspect]
     Indication: SCHIZOPHRENIA
     Dosage: 200 MG TO 400 MG
     Route: 048
     Dates: start: 20010101
  2. ZYPREXA [Suspect]
  3. ABILIFY [Concomitant]
  4. GEODON [Concomitant]
  5. HALDOL [Concomitant]
  6. RISPERDAL [Concomitant]

REACTIONS (4)
  - DEPRESSION [None]
  - DIABETES MELLITUS [None]
  - SUICIDAL IDEATION [None]
  - TARDIVE DYSKINESIA [None]
